FAERS Safety Report 17367856 (Version 1)
Quarter: 2020Q1

REPORT INFORMATION
  Report Type: Spontaneous
  Country: US (occurrence: US)
  Receive Date: 20200204
  Receipt Date: 20200204
  Transmission Date: 20200409
  Serious: No
  Sender: FDA-Public Use
  Company Number: US-ASTRAZENECA-2020SE13477

PATIENT
  Sex: Male
  Weight: 99.8 kg

DRUGS (6)
  1. SEROQUEL [Suspect]
     Active Substance: QUETIAPINE FUMARATE
     Indication: AFFECTIVE DISORDER
     Dosage: SOMETIMES TAKES 1/2 TAB IN THE MORNING AND 1 FULL TABLET AT BEDTIME, AS PRESCRIBED BUT WILL TAKE ...
     Route: 048
  2. SEROQUEL [Suspect]
     Active Substance: QUETIAPINE FUMARATE
     Indication: PARANOIA
     Route: 048
     Dates: start: 2017
  3. SYMBICORT [Suspect]
     Active Substance: BUDESONIDE\FORMOTEROL FUMARATE DIHYDRATE
     Dosage: DOSAGE UNKNOWN UNKNOWN
     Route: 055
  4. SEROQUEL [Suspect]
     Active Substance: QUETIAPINE FUMARATE
     Indication: AFFECTIVE DISORDER
     Route: 048
     Dates: start: 2017
  5. SEROQUEL [Suspect]
     Active Substance: QUETIAPINE FUMARATE
     Indication: PARANOIA
     Dosage: SOMETIMES TAKES 1/2 TAB IN THE MORNING AND 1 FULL TABLET AT BEDTIME, AS PRESCRIBED BUT WILL TAKE ...
     Route: 048
  6. SUBOXONE [Concomitant]
     Active Substance: BUPRENORPHINE HYDROCHLORIDE\NALOXONE HYDROCHLORIDE

REACTIONS (21)
  - Logorrhoea [Unknown]
  - Anxiety [Unknown]
  - Blepharospasm [Unknown]
  - Insomnia [Unknown]
  - Hunger [Unknown]
  - Dyskinesia [Unknown]
  - Muscle twitching [Unknown]
  - Intentional product misuse [Unknown]
  - Flatulence [Unknown]
  - Gastrointestinal haemorrhage [Unknown]
  - Restless legs syndrome [Unknown]
  - Arthropathy [Unknown]
  - Haematochezia [Unknown]
  - Syncope [Unknown]
  - Middle insomnia [Unknown]
  - Head injury [Unknown]
  - Hypophagia [Unknown]
  - Tachyphrenia [Unknown]
  - Dyspnoea [Unknown]
  - Tremor [Unknown]
  - Palpitations [Unknown]
